FAERS Safety Report 10177942 (Version 1)
Quarter: 2014Q2

REPORT INFORMATION
  Report Type: Report from Study
  Country: IN (occurrence: IN)
  Receive Date: 20140516
  Receipt Date: 20140516
  Transmission Date: 20141212
  Serious: Yes (Hospitalization)
  Sender: FDA-Public Use
  Company Number: PHHY2014IN059004

PATIENT
  Age: 75 Year
  Sex: Female

DRUGS (4)
  1. ACLASTA [Suspect]
     Indication: OSTEOPOROSIS
     Dosage: 5 MG,
     Route: 042
  2. ACLASTA [Suspect]
     Dosage: 5 MG
     Route: 042
  3. ACLASTA [Suspect]
     Dosage: 5 MG
     Route: 042
     Dates: start: 20130417
  4. LANTUS [Concomitant]
     Indication: DIABETES MELLITUS
     Dosage: 22 DF DAILY, (14.0 IN AFTERNOON AND 8.0 IN NIGHT)
     Route: 065

REACTIONS (2)
  - Paralysis [Not Recovered/Not Resolved]
  - Fall [Unknown]
